FAERS Safety Report 19479861 (Version 1)
Quarter: 2021Q2

REPORT INFORMATION
  Report Type: Spontaneous
  Country: CN (occurrence: CN)
  Receive Date: 20210630
  Receipt Date: 20210630
  Transmission Date: 20210717
  Serious: Yes (Life-Threatening, Hospitalization, Other)
  Sender: FDA-Public Use
  Company Number: CN-GLAXOSMITHKLINE-CN2021GSK141330

PATIENT
  Age: 48 Year
  Sex: Female
  Weight: 64 kg

DRUGS (1)
  1. ZEJULA [Suspect]
     Active Substance: NIRAPARIB
     Indication: OVARIAN EPITHELIAL CANCER
     Dosage: 200 MG, QD
     Route: 048
     Dates: start: 20210507, end: 20210611

REACTIONS (16)
  - Retching [Unknown]
  - Gingival bleeding [Unknown]
  - Pain [Unknown]
  - Pallor [Unknown]
  - Haemoglobin decreased [Not Recovered/Not Resolved]
  - Neutrophil count increased [Unknown]
  - White blood cell count decreased [Recovered/Resolved]
  - Nausea [Unknown]
  - Abdominal distension [Unknown]
  - Dizziness [Unknown]
  - Epistaxis [Unknown]
  - Discomfort [Unknown]
  - Platelet count decreased [Recovered/Resolved]
  - Myelosuppression [Recovering/Resolving]
  - Haematochezia [Unknown]
  - Blood pressure decreased [Unknown]

NARRATIVE: CASE EVENT DATE: 202105
